FAERS Safety Report 21544570 (Version 2)
Quarter: 2022Q4

REPORT INFORMATION
  Report Type: Report from Study
  Country: ES (occurrence: ES)
  Receive Date: 20221102
  Receipt Date: 20221108
  Transmission Date: 20230113
  Serious: Yes (Hospitalization)
  Sender: FDA-Public Use
  Company Number: ES-JNJFOC-20220529275

PATIENT
  Age: 51 Year
  Sex: Male
  Weight: 95 kg

DRUGS (14)
  1. CILTACABTAGENE AUTOLEUCEL [Suspect]
     Active Substance: CILTACABTAGENE AUTOLEUCEL
     Indication: Plasma cell myeloma
     Route: 042
     Dates: start: 20210928, end: 20210928
  2. DARATUMUMAB [Suspect]
     Active Substance: DARATUMUMAB
     Indication: Plasma cell myeloma
     Route: 058
     Dates: start: 20210706, end: 20210831
  3. CYCLOPHOSPHAMIDE [Concomitant]
     Active Substance: CYCLOPHOSPHAMIDE
     Indication: Plasma cell myeloma
     Route: 042
     Dates: start: 20210922, end: 20210924
  4. FLUDARABINE [Concomitant]
     Active Substance: FLUDARABINE PHOSPHATE
     Indication: Plasma cell myeloma
     Route: 042
     Dates: start: 20210922, end: 20210924
  5. ALLOPURINOL [Concomitant]
     Active Substance: ALLOPURINOL
     Indication: Prophylaxis
     Route: 048
  6. ACETAMINOPHEN\CODEINE PHOSPHATE [Concomitant]
     Active Substance: ACETAMINOPHEN\CODEINE PHOSPHATE
     Indication: Back pain
     Dosage: 300/30
     Route: 048
  7. OMEPRAZOLE [Concomitant]
     Active Substance: OMEPRAZOLE
     Indication: Gastrointestinal disorder therapy
     Route: 048
  8. ACYCLOVIR [Concomitant]
     Active Substance: ACYCLOVIR
     Indication: Antiviral prophylaxis
     Route: 048
  9. SULFAMETHOXAZOLE\TRIMETHOPRIM [Concomitant]
     Active Substance: SULFAMETHOXAZOLE\TRIMETHOPRIM
     Indication: Infection prophylaxis
     Dosage: 800/160
     Route: 048
  10. RIVOTRIL [Concomitant]
     Active Substance: CLONAZEPAM
     Indication: Seizure prophylaxis
     Route: 048
  11. FOLIC ACID [Concomitant]
     Active Substance: FOLIC ACID
     Indication: Anaemia prophylaxis
     Route: 048
  12. ESCITALOPRAM [Concomitant]
     Active Substance: ESCITALOPRAM OXALATE
     Indication: Antidepressant therapy
     Route: 048
  13. LORAZEPAM [Concomitant]
     Active Substance: LORAZEPAM
     Indication: Prophylaxis
     Route: 048
  14. ASPIRIN [Concomitant]
     Active Substance: ASPIRIN
     Indication: Thrombosis prophylaxis
     Route: 048

REACTIONS (1)
  - Cellulitis [Recovered/Resolved]

NARRATIVE: CASE EVENT DATE: 20220510
